FAERS Safety Report 4356357-3 (Version None)
Quarter: 2004Q2

REPORT INFORMATION
  Report Type: 
  Country: None (occurrence: None)
  Receive Date: 20040506
  Receipt Date: 20040426
  Transmission Date: 20050107
  Serious: Yes (Other)
  Sender: FDA-Public Use
  Company Number: US-JNJFOC- 20040405490

PATIENT
  Age: 83 Year
  Sex: Female
  Weight: 67.1324 kg

DRUGS (7)
  1. INFLIXIMAB (INFLIXIMAB, RECOMBINANT) LYOPHILIZED POWDER [Suspect]
     Indication: RHEUMATOID ARTHRITIS
     Dosage: INTRAVENOUS
     Route: 042
     Dates: start: 20020213
  2. METHOTREXATE [Concomitant]
  3. POTASSIUM (POTASSIUM) [Concomitant]
  4. LEVOXYL [Concomitant]
  5. QUININE SUILFATE (QUININE SULFATE) [Concomitant]
  6. FUROSEMIDE [Concomitant]
  7. FOLIC ACID [Concomitant]

REACTIONS (1)
  - BASAL CELL CARCINOMA [None]
